FAERS Safety Report 10176486 (Version 2)
Quarter: 2014Q3

REPORT INFORMATION
  Report Type: Spontaneous
  Country: US (occurrence: US)
  Receive Date: 20140516
  Receipt Date: 20140722
  Transmission Date: 20150326
  Serious: Yes (Hospitalization, Other)
  Sender: FDA-Public Use
  Company Number: US-ASTRAZENECA-2014SE31885

PATIENT
  Age: 24 Year
  Sex: Female
  Weight: 83.9 kg

DRUGS (5)
  1. PRISTIQ EXTENDED RELEASE [Suspect]
     Active Substance: DESVENLAFAXINE SUCCINATE
     Route: 065
     Dates: end: 20140505
  2. XANAX [Suspect]
     Active Substance: ALPRAZOLAM
     Route: 065
  3. LAMICTAL [Suspect]
     Active Substance: LAMOTRIGINE
     Route: 065
     Dates: end: 20140505
  4. VISTARIL [Suspect]
     Active Substance: HYDROXYZINE PAMOATE
     Route: 065
     Dates: end: 20140505
  5. SEROQUEL [Suspect]
     Active Substance: QUETIAPINE FUMARATE
     Indication: BIPOLAR DISORDER
     Dosage: 3 OR 4 TABS
     Route: 048
     Dates: start: 20131024

REACTIONS (7)
  - Suicidal ideation [Recovering/Resolving]
  - Overdose [Recovered/Resolved]
  - Serotonin syndrome [Unknown]
  - Anxiety [Unknown]
  - Depression [Unknown]
  - Major depression [Unknown]
  - Borderline personality disorder [Unknown]

NARRATIVE: CASE EVENT DATE: 20140503
